FAERS Safety Report 6125976-6 (Version None)
Quarter: 2009Q1

REPORT INFORMATION
  Report Type: 
  Country: None (occurrence: None)
  Receive Date: 20090320
  Receipt Date: 20090316
  Transmission Date: 20090719
  Serious: Yes (Life-Threatening, Hospitalization)
  Sender: FDA-Public Use
  Company Number: GB-JNJFOC-20090303797

PATIENT
  Age: 49 Year
  Sex: Female

DRUGS (7)
  1. DARUNAVIR [Suspect]
     Indication: DRUG USE FOR UNKNOWN INDICATION
     Route: 048
  2. ETRAVIRINE [Suspect]
     Indication: DRUG USE FOR UNKNOWN INDICATION
     Route: 048
  3. RALTEGRAVIR [Suspect]
     Indication: DRUG USE FOR UNKNOWN INDICATION
     Route: 048
  4. RITONAVIR [Concomitant]
  5. AMLODIPINE [Concomitant]
     Route: 065
  6. BENDROFLUMETHIAZIDE [Concomitant]
  7. DICLOFENAC [Concomitant]

REACTIONS (10)
  - ALANINE AMINOTRANSFERASE INCREASED [None]
  - ANOREXIA [None]
  - ARTHRALGIA [None]
  - DEBRIDEMENT [None]
  - HEADACHE [None]
  - ORAL DISORDER [None]
  - PRURITUS [None]
  - RASH [None]
  - TACHYCARDIA [None]
  - TEARFULNESS [None]
